FAERS Safety Report 5604000-5 (Version None)
Quarter: 2008Q1

REPORT INFORMATION
  Report Type: 
  Country: None (occurrence: None)
  Receive Date: 20080123
  Receipt Date: 20080114
  Transmission Date: 20080703
  Serious: Yes (Death)
  Sender: FDA-Public Use
  Company Number: B0503071A

PATIENT
  Age: 18 Year
  Sex: Female

DRUGS (2)
  1. BUPROPION HCL [Suspect]
     Dosage: ORAL
     Route: 048
  2. ANTIDEPRESSANT (FORMULATION UNKNOWN) (ANTIDEPRESSANT) [Suspect]
     Dosage: ORAL
     Route: 048

REACTIONS (7)
  - ANOXIC ENCEPHALOPATHY [None]
  - BRAIN DEATH [None]
  - COMPLETED SUICIDE [None]
  - CONVULSION [None]
  - MALAISE [None]
  - RESPIRATORY ARREST [None]
  - SOMNOLENCE [None]
